FAERS Safety Report 7872333-8 (Version None)
Quarter: 2011Q4

REPORT INFORMATION
  Report Type: 
  Country: None (occurrence: None)
  Receive Date: 20111030
  Receipt Date: 20110317
  Transmission Date: 20120403
  Serious: No
  Sender: FDA-Public Use
  Company Number: US-AMGEN-USASP2011014750

PATIENT
  Age: 68 Year
  Sex: Female

DRUGS (1)
  1. ENBREL [Suspect]
     Indication: RHEUMATOID ARTHRITIS
     Dosage: 50 MG, QWK
     Dates: start: 20110201

REACTIONS (8)
  - GAIT DISTURBANCE [None]
  - RHEUMATOID ARTHRITIS [None]
  - GOUT [None]
  - PAIN IN EXTREMITY [None]
  - NASOPHARYNGITIS [None]
  - HEADACHE [None]
  - MUSCULOSKELETAL PAIN [None]
  - FLANK PAIN [None]
